FAERS Safety Report 14210737 (Version 1)
Quarter: 2017Q4

REPORT INFORMATION
  Report Type: Spontaneous
  Country: GB (occurrence: GB)
  Receive Date: 20171121
  Receipt Date: 20171121
  Transmission Date: 20180321
  Serious: Yes (Death)
  Sender: FDA-Public Use
  Company Number: GB-ELI_LILLY_AND_COMPANY-GB201711007292

PATIENT
  Age: 70 Year
  Sex: Female

DRUGS (1)
  1. LARTRUVO [Suspect]
     Active Substance: OLARATUMAB
     Indication: ABDOMINAL NEOPLASM
     Dosage: UNK
     Route: 065
     Dates: start: 20171025

REACTIONS (2)
  - Gastrointestinal perforation [Fatal]
  - Off label use [Unknown]
